FAERS Safety Report 14710286 (Version 1)
Quarter: 2018Q2

REPORT INFORMATION
  Report Type: Spontaneous
  Country: US (occurrence: US)
  Receive Date: 20180403
  Receipt Date: 20180403
  Transmission Date: 20180711
  Serious: No
  Sender: FDA-Public Use
  Company Number: US-ROCHE-1945458

PATIENT
  Age: 80 Year
  Sex: Female

DRUGS (1)
  1. ERIVEDGE [Suspect]
     Active Substance: VISMODEGIB
     Indication: NEOPLASM MALIGNANT
     Route: 048
     Dates: start: 20161117

REACTIONS (3)
  - Weight decreased [Unknown]
  - Dysgeusia [Unknown]
  - Ageusia [Unknown]

NARRATIVE: CASE EVENT DATE: 20170603
